FAERS Safety Report 12670319 (Version 1)
Quarter: 2016Q3

REPORT INFORMATION
  Report Type: Spontaneous
  Country: DE (occurrence: DE)
  Receive Date: 20160822
  Receipt Date: 20160822
  Transmission Date: 20161109
  Serious: Yes (Other)
  Sender: FDA-Public Use
  Company Number: DE-ROCHE-1816999

PATIENT
  Age: 23 Year
  Sex: Female

DRUGS (2)
  1. MABTHERA [Suspect]
     Active Substance: RITUXIMAB
     Indication: CHRONIC INFLAMMATORY DEMYELINATING POLYRADICULONEUROPATHY
     Route: 065
     Dates: start: 20160726
  2. MABTHERA [Suspect]
     Active Substance: RITUXIMAB
     Indication: GUILLAIN-BARRE SYNDROME
     Dosage: 2 TIMES TOTAL
     Route: 065
     Dates: start: 2016

REACTIONS (2)
  - Paralysis [Not Recovered/Not Resolved]
  - Off label use [Unknown]
